FAERS Safety Report 4899588-6 (Version None)
Quarter: 2006Q1

REPORT INFORMATION
  Report Type: 
  Country: None (occurrence: None)
  Receive Date: 20060123
  Receipt Date: 20050811
  Transmission Date: 20060701
  Serious: Yes (Hospitalization)
  Sender: FDA-Public Use
  Company Number: PERC20050035

PATIENT
  Age: 52 Year
  Sex: Male
  Weight: 68.1 kg

DRUGS (3)
  1. PERCOCET [Suspect]
     Dosage: PO
     Route: 048
  2. CETUXIMAB [Suspect]
     Indication: PANCREATIC CARCINOMA
     Dosage: VAR 2 DOSES
     Dates: start: 20050722, end: 20050728
  3. GEMITABINE ELI LILLY [Suspect]
     Indication: PANCREATIC CARCINOMA
     Dosage: 1000 MG/M2 ONCE
     Dates: start: 20050722, end: 20050722

REACTIONS (2)
  - NAUSEA [None]
  - VOMITING [None]
